FAERS Safety Report 6292506-8 (Version None)
Quarter: 2009Q3

REPORT INFORMATION
  Report Type: 
  Country: None (occurrence: None)
  Receive Date: 20090731
  Receipt Date: 20090720
  Transmission Date: 20100115
  Serious: Yes (Life-Threatening, Hospitalization)
  Sender: FDA-Public Use
  Company Number: IL-PFIZER INC-2009237292

PATIENT
  Age: 78 Year

DRUGS (13)
  1. LYRICA [Suspect]
     Indication: DIABETIC NEUROPATHY
     Dosage: 150 MG, 2X/DAY
     Dates: start: 20080801, end: 20090101
  2. LYRICA [Suspect]
     Dosage: 75 MG, 2X/DAY
  3. LIPITOR [Concomitant]
     Dosage: UNK
  4. SERTRALINE HYDROCHLORIDE [Concomitant]
     Dosage: UNK
  5. PRILOSEC [Concomitant]
  6. INSULIN [Concomitant]
  7. DERALIN [Concomitant]
  8. LEVOLAC [Concomitant]
  9. FUSID [Concomitant]
  10. ALDACTONE [Concomitant]
  11. ATACAND [Concomitant]
  12. ACETYLSALICYLIC ACID [Concomitant]
     Dosage: 100 UNK, UNK
  13. EVITOL [Concomitant]

REACTIONS (3)
  - ELECTROLYTE IMBALANCE [None]
  - HEPATIC ENCEPHALOPATHY [None]
  - HEPATIC STEATOSIS [None]
